FAERS Safety Report 20938933 (Version 1)
Quarter: 2022Q2

REPORT INFORMATION
  Report Type: Spontaneous
  Country: US (occurrence: None)
  Receive Date: 20220609
  Receipt Date: 20220609
  Transmission Date: 20220721
  Serious: No
  Sender: FDA-Public Use
  Company Number: None

PATIENT
  Sex: Female

DRUGS (1)
  1. PAXLOVID [Suspect]
     Active Substance: NIRMATRELVIR\RITONAVIR
     Indication: COVID-19
     Dosage: FREQUENCY : TWICE A DAY;?
     Route: 048
     Dates: start: 20220526, end: 20220531

REACTIONS (6)
  - SARS-CoV-2 test positive [None]
  - Pyrexia [None]
  - Headache [None]
  - Rhinorrhoea [None]
  - Sneezing [None]
  - COVID-19 [None]

NARRATIVE: CASE EVENT DATE: 20220604
